FAERS Safety Report 24636552 (Version 1)
Quarter: 2024Q4

REPORT INFORMATION
  Report Type: Spontaneous
  Country: RU (occurrence: RU)
  Receive Date: 20241119
  Receipt Date: 20241119
  Transmission Date: 20250115
  Serious: Yes (Other)
  Sender: SANOFI AVENTIS
  Company Number: RU-SA-SAC20240415001072

PATIENT

DRUGS (2)
  1. SOLIQUA 100/33 [Suspect]
     Active Substance: INSULIN GLARGINE\LIXISENATIDE
     Indication: Diabetes mellitus
     Dosage: UNK
     Route: 065
  2. INSULIN NOS [Concomitant]
     Active Substance: INSULIN NOS
     Dosage: UNK

REACTIONS (1)
  - Colitis ulcerative [Unknown]
